FAERS Safety Report 10419451 (Version 2)
Quarter: 2014Q3

REPORT INFORMATION
  Report Type: Spontaneous
  Country: US (occurrence: US)
  Receive Date: 20140829
  Receipt Date: 20140829
  Transmission Date: 20150326
  Serious: Yes (Hospitalization, Other)
  Sender: FDA-Public Use
  Company Number: US-009507513-2005-124959-NL

PATIENT
  Age: 26 Year
  Sex: Female
  Weight: 55.8 kg

DRUGS (4)
  1. NUVARING [Suspect]
     Active Substance: ETHINYL ESTRADIOL\ETONOGESTREL
     Indication: CONTRACEPTION
     Dosage: CONTINUING: UNK
     Route: 067
     Dates: start: 200311, end: 200411
  2. LEXAPRO [Concomitant]
     Active Substance: ESCITALOPRAM OXALATE
     Dosage: UNK DF, UNK
  3. NUVARING [Suspect]
     Active Substance: ETHINYL ESTRADIOL\ETONOGESTREL
     Indication: HORMONE THERAPY
  4. NORTRIPTYLINE [Concomitant]
     Active Substance: NORTRIPTYLINE
     Dosage: UNK DF, UNK

REACTIONS (11)
  - Anxiety [Unknown]
  - Depression [Unknown]
  - Off label use [Unknown]
  - Pulmonary embolism [Recovered/Resolved with Sequelae]
  - Contusion [Unknown]
  - Fatigue [Unknown]
  - Cervical dysplasia [Unknown]
  - Headache [Unknown]
  - Withdrawal bleed [Unknown]
  - Fungal infection [Unknown]
  - Cervicitis [Unknown]

NARRATIVE: CASE EVENT DATE: 2004
